FAERS Safety Report 4968726-9 (Version None)
Quarter: 2006Q2

REPORT INFORMATION
  Report Type: 
  Country: None (occurrence: None)
  Receive Date: 20060411
  Receipt Date: 20050707
  Transmission Date: 20061013
  Serious: Yes (Other)
  Sender: FDA-Public Use
  Company Number: PHHO2005FR10797

PATIENT
  Age: 59 Year
  Sex: Female
  Weight: 77 kg

DRUGS (5)
  1. DOLIPRANE [Concomitant]
  2. CALCIUM GLUCONATE [Concomitant]
     Dates: start: 20040116
  3. VITAMIN D [Concomitant]
     Dates: start: 20040116
  4. FEMARA [Suspect]
     Indication: BREAST CANCER
     Dosage: 2.5 MG, QD
     Route: 048
     Dates: start: 20040116
  5. ZOLEDRONIC ACID [Suspect]
     Dosage: 4MG
     Route: 042
     Dates: start: 20040116

REACTIONS (4)
  - BONE DISORDER [None]
  - GINGIVITIS [None]
  - IMPAIRED HEALING [None]
  - TOOTH EXTRACTION [None]
